FAERS Safety Report 10057490 (Version 1)
Quarter: 2014Q2

REPORT INFORMATION
  Report Type: Spontaneous
  Country: US (occurrence: US)
  Receive Date: 20140403
  Receipt Date: 20140403
  Transmission Date: 20141212
  Serious: Yes (Hospitalization)
  Sender: FDA-Public Use
  Company Number: US-ABBVIE-14P-163-1218074-00

PATIENT
  Age: 63 Year
  Sex: Male
  Weight: 113.5 kg

DRUGS (2)
  1. ANDROGEL [Suspect]
     Indication: BLOOD TESTOSTERONE DECREASED
     Dosage: PACKET
     Route: 061
     Dates: start: 2011, end: 2012
  2. ANDROGEL [Suspect]
     Dosage: 2 PACKETS
     Route: 061
     Dates: start: 2012, end: 201312

REACTIONS (5)
  - Cerebrovascular accident [Recovered/Resolved]
  - Carotid artery occlusion [Not Recovered/Not Resolved]
  - Intracranial aneurysm [Not Recovered/Not Resolved]
  - Blood cholesterol increased [Not Recovered/Not Resolved]
  - Lymphoedema [Not Recovered/Not Resolved]
